FAERS Safety Report 8616446-1 (Version None)
Quarter: 2012Q3

REPORT INFORMATION
  Report Type: 
  Country: None (occurrence: None)
  Receive Date: 20120823
  Receipt Date: 20120816
  Transmission Date: 20120928
  Serious: Yes (Hospitalization, Disabling, Other)
  Sender: FDA-Public Use
  Company Number: US-009507513-2009-189370-NL

PATIENT

DRUGS (5)
  1. SYNTHROID [Concomitant]
     Indication: GOITRE
     Dosage: 50 ?G, UNK
     Route: 048
     Dates: start: 20060201
  2. NUVARING [Suspect]
     Indication: CONTRACEPTION
     Dosage: DOSE TEXT: 3 WEEKS EVERY MONTH, CONTINUING: NO
     Route: 067
     Dates: start: 20060601, end: 20061201
  3. LEVOXYL [Concomitant]
  4. SINGULAIR [Concomitant]
     Dosage: 10 MG, QD
     Route: 048
  5. PROVENTIL [Concomitant]
     Indication: BRONCHITIS
     Dosage: UNK UNK, PRN

REACTIONS (27)
  - OVARIAN CYST RUPTURED [None]
  - CONJUNCTIVITIS ALLERGIC [None]
  - ASTHMA [None]
  - DEEP VEIN THROMBOSIS [None]
  - MUSCLE STRAIN [None]
  - VENA CAVA FILTER INSERTION [None]
  - TINEA PEDIS [None]
  - THROMBOPHLEBITIS [None]
  - BLOOD ALKALINE PHOSPHATASE INCREASED [None]
  - GASTROOESOPHAGEAL REFLUX DISEASE [None]
  - CARPAL TUNNEL SYNDROME [None]
  - SCIATICA [None]
  - EPICONDYLITIS [None]
  - PHLEBITIS [None]
  - GASTRIC ULCER [None]
  - NIGHTMARE [None]
  - ACROCHORDON [None]
  - OSTEOARTHRITIS [None]
  - RHINITIS ALLERGIC [None]
  - ANAEMIA [None]
  - ARTHRITIS [None]
  - INSOMNIA [None]
  - BIRTH MARK [None]
  - PLANTAR FASCIITIS [None]
  - MENISCUS LESION [None]
  - BACK PAIN [None]
  - RESTLESS LEGS SYNDROME [None]
